FAERS Safety Report 5166864-1 (Version None)
Quarter: 2006Q4

REPORT INFORMATION
  Report Type: 
  Country: None (occurrence: None)
  Receive Date: 20061207
  Receipt Date: 20061115
  Transmission Date: 20070319
  Serious: Yes (Hospitalization)
  Sender: FDA-Public Use
  Company Number: BE-ELI_LILLY_AND_COMPANY-BE200611003311

PATIENT
  Age: 72 Year
  Sex: Female

DRUGS (3)
  1. GEMZAR [Suspect]
     Indication: NON-SMALL CELL LUNG CANCER
     Dosage: 1000 MG/M2, UNK
     Route: 042
     Dates: start: 20030218, end: 20030727
  2. CISPLATIN [Concomitant]
     Indication: NON-SMALL CELL LUNG CANCER
     Dosage: 50 MG/M2, OTHER
     Route: 042
     Dates: start: 20030218, end: 20030727
  3. ISOPHOSPHAMIDE [Concomitant]
     Indication: NON-SMALL CELL LUNG CANCER
     Dosage: 3000 MG/M2, OTHER
     Route: 042
     Dates: start: 20030218, end: 20030727

REACTIONS (2)
  - PULMONARY EMBOLISM [None]
  - PULMONARY THROMBOSIS [None]
